FAERS Safety Report 25889808 (Version 2)
Quarter: 2025Q4

REPORT INFORMATION
  Report Type: Report from Study
  Country: EU (occurrence: EU)
  Receive Date: 20251007
  Receipt Date: 20251126
  Transmission Date: 20260117
  Serious: Yes (Other)
  Sender: PFIZER
  Company Number: EU-PFIZER INC-PV202500117407

PATIENT
  Age: 80 Year
  Sex: Female
  Weight: 55 kg

DRUGS (12)
  1. ELRANATAMAB [Suspect]
     Active Substance: ELRANATAMAB
     Indication: Plasma cell myeloma
     Dosage: 12 MG, EVERY 4 DAYS
     Route: 058
     Dates: start: 20250929
  2. VALACYCLOVIR HYDROCHLORIDE [Concomitant]
     Active Substance: VALACYCLOVIR HYDROCHLORIDE
     Dosage: 500 MG, 1X/DAY
     Route: 048
     Dates: start: 202401
  3. BACTRIM [Concomitant]
     Active Substance: SULFAMETHOXAZOLE\TRIMETHOPRIM
     Dosage: UNK, X3/WEEK
     Route: 048
     Dates: start: 202401
  4. LEVOTHYROXINE [Concomitant]
     Active Substance: LEVOTHYROXINE
     Indication: Thyroidectomy
     Dosage: 100 UG, DAILY
     Route: 048
     Dates: start: 202401
  5. BROMAZEPAM [Concomitant]
     Active Substance: BROMAZEPAM
     Indication: Anxiolytic therapy
     Dosage: UNK, 2X/DAY (1/4 OF TABLET AT NOON AND IN THE EVENING)
     Route: 048
     Dates: start: 202401
  6. SMECTA [Concomitant]
     Active Substance: MONTMORILLONITE
     Indication: Abdominal pain upper
     Dosage: 1 DF, DAILY
     Route: 048
     Dates: start: 202401
  7. SMECTA [Concomitant]
     Active Substance: MONTMORILLONITE
     Indication: Oesophageal pain
  8. KARDEGIC [Concomitant]
     Active Substance: ASPIRIN DL-LYSINE
     Indication: Antiplatelet therapy
     Dosage: 75 MG, DAILY
     Route: 048
     Dates: start: 202401
  9. TRELEGY ELLIPTA [Concomitant]
     Active Substance: FLUTICASONE FUROATE\UMECLIDINIUM BROMIDE\VILANTEROL TRIFENATATE
     Indication: Bronchial disorder
     Dosage: UNK
     Route: 048
     Dates: start: 202401
  10. LEUCOVORIN [Concomitant]
     Active Substance: LEUCOVORIN\LEUCOVORIN CALCIUM
     Indication: Colon cancer recurrent
     Dosage: UNK
  11. FLUOROURACIL [Concomitant]
     Active Substance: FLUOROURACIL
     Indication: Colon cancer recurrent
     Dosage: UNK
  12. OXALIPLATIN [Concomitant]
     Active Substance: OXALIPLATIN
     Indication: Colon cancer recurrent
     Dosage: UNK

REACTIONS (1)
  - Cytokine release syndrome [Recovered/Resolved]

NARRATIVE: CASE EVENT DATE: 20250930
